FAERS Safety Report 8832059 (Version 1)
Quarter: 2012Q4

REPORT INFORMATION
  Report Type: 
  Country: JP (occurrence: JP)
  Receive Date: 20121009
  Receipt Date: 20121009
  Transmission Date: 20130627
  Serious: Yes (Hospitalization)
  Sender: FDA-Public Use
  Company Number: JP-ROCHE-1140413

PATIENT
  Age: 76 Year
  Sex: Male

DRUGS (9)
  1. AVASTIN [Suspect]
     Indication: RECTAL CANCER RECURRENT
     Dosage: Dosage is uncertain.
     Route: 041
     Dates: start: 201011
  2. AVASTIN [Suspect]
     Indication: RECTAL CANCER RECURRENT
     Dosage: Dosage is uncertain.
     Route: 041
     Dates: start: 201203
  3. ELPLAT [Concomitant]
     Indication: RECTAL CANCER RECURRENT
     Dosage: Dosage is uncertain.
     Route: 041
     Dates: start: 201008
  4. 5-FU [Concomitant]
     Indication: RECTAL CANCER RECURRENT
     Dosage: Dosage is uncertain.
     Route: 040
     Dates: start: 201008
  5. 5-FU [Concomitant]
     Indication: RECTAL CANCER RECURRENT
     Dosage: Dosage is uncertain.
     Route: 041
     Dates: start: 201008
  6. 5-FU [Concomitant]
     Indication: RECTAL CANCER RECURRENT
     Dosage: Dosage is uncertain.
     Route: 040
     Dates: start: 201203
  7. 5-FU [Concomitant]
     Indication: RECTAL CANCER RECURRENT
     Dosage: Dosage is uncertain.
     Route: 041
     Dates: start: 201203
  8. LEVOFOLINATE [Concomitant]
     Indication: RECTAL CANCER RECURRENT
     Dosage: Dosage is uncertain.
     Route: 041
     Dates: start: 201008
  9. LEVOFOLINATE [Concomitant]
     Indication: RECTAL CANCER RECURRENT
     Dosage: Dosage is uncertain.
     Route: 041
     Dates: start: 201203

REACTIONS (1)
  - Hepatitis B [Recovering/Resolving]
